FAERS Safety Report 21755842 (Version 1)
Quarter: 2022Q4

REPORT INFORMATION
  Report Type: Report from Study
  Country: CA (occurrence: CA)
  Receive Date: 20221220
  Receipt Date: 20221220
  Transmission Date: 20230113
  Serious: Yes (Death)
  Sender: FDA-Public Use
  Company Number: CA-002147023-PHHY2018CA072334

PATIENT
  Age: 70 Year
  Sex: Female

DRUGS (4)
  1. JADENU [Suspect]
     Active Substance: DEFERASIROX
     Indication: Iron overload
     Dosage: 720 MG, QD
     Route: 048
     Dates: start: 20180319
  2. JADENU [Suspect]
     Active Substance: DEFERASIROX
     Indication: Myelodysplastic syndrome
     Dosage: 360 MG, QD
     Route: 048
  3. SOLIRIS [Concomitant]
     Active Substance: ECULIZUMAB
     Indication: Post herpetic neuralgia
     Dosage: (Q15 DAYS)
     Route: 065
  4. EPREX [Concomitant]
     Active Substance: ERYTHROPOIETIN
     Indication: Product used for unknown indication
     Dosage: UNK
     Route: 065
     Dates: start: 20190527

REACTIONS (13)
  - Death [Fatal]
  - Serum ferritin abnormal [Unknown]
  - Blood pressure diastolic decreased [Unknown]
  - Insomnia [Unknown]
  - Muscle spasms [Not Recovered/Not Resolved]
  - Acne [Unknown]
  - Blood creatinine decreased [Unknown]
  - Alopecia [Unknown]
  - Headache [Unknown]
  - Platelet count decreased [Unknown]
  - Haemoglobin decreased [Unknown]
  - Blood creatinine increased [Unknown]
  - Pruritus [Unknown]

NARRATIVE: CASE EVENT DATE: 20220920
